FAERS Safety Report 4735356-3 (Version None)
Quarter: 2005Q3

REPORT INFORMATION
  Report Type: 
  Country: None (occurrence: None)
  Receive Date: 20050802
  Receipt Date: 20050726
  Transmission Date: 20060218
  Serious: Yes (Life-Threatening)
  Sender: FDA-Public Use
  Company Number: 2005-130732-NL

PATIENT
  Age: 11 Year
  Sex: Male
  Weight: 36 kg

DRUGS (5)
  1. SUCCINYLCHOLINE [Suspect]
     Indication: INTUBATION
     Dosage: 60 MG ONCE
  2. GLYCOPYRROLATE [Concomitant]
  3. OXYGEN [Concomitant]
  4. NITROUS OXIDE [Concomitant]
  5. SEVOFLURANE [Concomitant]

REACTIONS (12)
  - BRADYCARDIA [None]
  - CARDIAC ARREST [None]
  - CEREBRAL ISCHAEMIA [None]
  - HAEMODIALYSIS [None]
  - HYPERKALAEMIA [None]
  - LEFT VENTRICULAR FAILURE [None]
  - MYOGLOBINAEMIA [None]
  - MYOPATHY [None]
  - PULMONARY OEDEMA [None]
  - RENAL FAILURE [None]
  - VENTRICULAR FIBRILLATION [None]
  - VENTRICULAR TACHYCARDIA [None]
